FAERS Safety Report 20645194 (Version 1)
Quarter: 2022Q1

REPORT INFORMATION
  Report Type: Other
  Country: BE (occurrence: None)
  Receive Date: 20220328
  Receipt Date: 20220328
  Transmission Date: 20220423
  Serious: No
  Sender: FDA-Public Use
  Company Number: BE-ROCHE-3056506

PATIENT
  Age: 36 Year
  Sex: Female
  Weight: 50 kg

DRUGS (6)
  1. OCRELIZUMAB [Suspect]
     Active Substance: OCRELIZUMAB
     Indication: Relapsing-remitting multiple sclerosis
     Route: 042
     Dates: start: 20200213
  2. KEPPRA [Concomitant]
     Active Substance: LEVETIRACETAM
     Route: 048
     Dates: start: 20190619
  3. XARELTO [Concomitant]
     Active Substance: RIVAROXABAN
     Route: 048
     Dates: start: 20200216
  4. KYLEENA [Concomitant]
     Active Substance: LEVONORGESTREL
     Dates: start: 20190927
  5. DAFALGAN [Concomitant]
     Active Substance: ACETAMINOPHEN
     Route: 048
     Dates: start: 20220103, end: 20220104
  6. LYRICA [Concomitant]
     Active Substance: PREGABALIN
     Route: 048
     Dates: start: 20200801

REACTIONS (1)
  - COVID-19 [Recovered/Resolved with Sequelae]

NARRATIVE: CASE EVENT DATE: 20220103
